FAERS Safety Report 6505059-3 (Version None)
Quarter: 2009Q4

REPORT INFORMATION
  Report Type: 
  Country: None (occurrence: None)
  Receive Date: 20091218
  Receipt Date: 20091210
  Transmission Date: 20100525
  Serious: Yes (Other)
  Sender: FDA-Public Use
  Company Number: US-JNJFOC-20091204261

PATIENT
  Sex: Female
  Weight: 77.11 kg

DRUGS (9)
  1. DURAGESIC-100 [Suspect]
     Indication: PAIN
     Route: 062
  2. DURAGESIC-100 [Suspect]
     Route: 062
  3. ESTRADIOL [Concomitant]
     Indication: HORMONE LEVEL ABNORMAL
     Route: 048
  4. MAGNESIUM [Concomitant]
     Indication: PAIN
     Route: 048
  5. POTASSIUM [Concomitant]
     Indication: MINERAL SUPPLEMENTATION
     Route: 048
  6. LASIX [Concomitant]
     Indication: FLUID RETENTION
     Route: 048
  7. COREG [Concomitant]
     Indication: BLOOD PRESSURE
     Route: 048
  8. SYNTHROID [Concomitant]
     Indication: THYROID DISORDER
     Route: 048
  9. LYRICA [Concomitant]
     Indication: PAIN
     Route: 048

REACTIONS (6)
  - APPLICATION SITE PRURITUS [None]
  - DEPRESSION [None]
  - GASTRIC DISORDER [None]
  - GASTRIC ULCER [None]
  - INTERVERTEBRAL DISC DEGENERATION [None]
  - PRODUCT QUALITY ISSUE [None]
